FAERS Safety Report 21726943 (Version 1)
Quarter: 2022Q4

REPORT INFORMATION
  Report Type: Spontaneous
  Country: IE (occurrence: IE)
  Receive Date: 20221214
  Receipt Date: 20221214
  Transmission Date: 20230113
  Serious: Yes (Other)
  Sender: FDA-Public Use
  Company Number: None

PATIENT
  Age: 37 Year
  Sex: Female

DRUGS (1)
  1. PREGABALIN [Suspect]
     Active Substance: PREGABALIN
     Indication: Product used for unknown indication
     Dosage: 3000 - 4500MG DAILY; INDICATION: NONE - NOT PRESCRIBED; A FEW MONTHS - DATES VERY APPROX.
     Dates: start: 20220801, end: 20221030

REACTIONS (6)
  - Intentional product use issue [Unknown]
  - Affect lability [Unknown]
  - Feeling abnormal [Unknown]
  - Withdrawal syndrome [Unknown]
  - Muscle twitching [Unknown]
  - Drug abuse [Unknown]
